FAERS Safety Report 18697765 (Version 2)
Quarter: 2022Q1

REPORT INFORMATION
  Report Type: Spontaneous
  Country: US (occurrence: US)
  Receive Date: 20210105
  Receipt Date: 20220314
  Transmission Date: 20220423
  Serious: Yes (Other)
  Sender: FDA-Public Use
  Company Number: US-MLMSERVICE-20201221-2640876-2

PATIENT
  Age: 73 Year
  Sex: Female

DRUGS (1)
  1. OXYCODONE [Suspect]
     Active Substance: OXYCODONE
     Indication: Systemic lupus erythematosus
     Dosage: 10 MILLIGRAM, QID (EVERY 6-HOURS)
     Route: 065

REACTIONS (3)
  - Constipation [Recovering/Resolving]
  - Oesophageal motility disorder [Recovering/Resolving]
  - Oesophageal achalasia [Recovering/Resolving]
